FAERS Safety Report 25654787 (Version 1)
Quarter: 2025Q3

REPORT INFORMATION
  Report Type: Report from Study
  Country: BR (occurrence: BR)
  Receive Date: 20250807
  Receipt Date: 20250807
  Transmission Date: 20251020
  Serious: Yes (Hospitalization, Other)
  Sender: RANBAXY
  Company Number: BR-SUN PHARMACEUTICAL INDUSTRIES LTD-2025R1-521497

PATIENT
  Age: 2 Year
  Sex: Female

DRUGS (1)
  1. VALPROIC ACID [Suspect]
     Active Substance: VALPROIC ACID
     Indication: Product used for unknown indication
     Route: 065

REACTIONS (4)
  - Toxicity to various agents [Unknown]
  - Sensory loss [Recovered/Resolved]
  - Ataxia [Recovered/Resolved]
  - Extrapyramidal disorder [Recovered/Resolved]
